APPROVED DRUG PRODUCT: DEXTROMETHORPHAN HYDROBROMIDE AND QUINIDINE SULFATE
Active Ingredient: DEXTROMETHORPHAN HYDROBROMIDE; QUINIDINE SULFATE
Strength: 20MG;10MG
Dosage Form/Route: CAPSULE;ORAL
Application: A202934 | Product #001 | TE Code: AB
Applicant: ACTAVIS ELIZABETH LLC
Approved: Oct 10, 2017 | RLD: No | RS: No | Type: RX